FAERS Safety Report 4273973-8 (Version None)
Quarter: 2004Q1

REPORT INFORMATION
  Report Type: 
  Country: None (occurrence: None)
  Receive Date: 20040115
  Receipt Date: 20040105
  Transmission Date: 20041129
  Serious: No
  Sender: FDA-Public Use
  Company Number: 04P-163-0246937-00

PATIENT

DRUGS (4)
  1. BIAXIN [Suspect]
     Indication: MULTIPLE MYELOMA
     Dosage: 500 MG, 2 IN 1 D
  2. THALIDOMIDE [Suspect]
     Indication: MULTIPLE MYELOMA
     Dosage: 50 MG, 1 IN 1 D
  3. DEXAMETHASONE [Concomitant]
  4. OMEPRAZOLE [Concomitant]

REACTIONS (1)
  - PULMONARY EMBOLISM [None]
